FAERS Safety Report 8876683 (Version 1)
Quarter: 2012Q4

REPORT INFORMATION
  Report Type: 
  Country: US (occurrence: US)
  Receive Date: 20121023
  Receipt Date: 20121023
  Transmission Date: 20130627
  Serious: Yes (Other)
  Sender: FDA-Public Use
  Company Number: US-AMGEN-USASP2011057059

PATIENT
  Sex: Female

DRUGS (3)
  1. ENBREL [Suspect]
     Indication: RHEUMATOID ARTHRITIS
     Dosage: 25 mg, UNK
     Route: 058
     Dates: end: 2005
  2. PLAQUENIL                          /00072602/ [Concomitant]
     Dosage: 2 mg, UNK
  3. TREXALL [Concomitant]
     Dosage: 4 mg, qwk
     Dates: start: 1982

REACTIONS (2)
  - Paraesthesia [Not Recovered/Not Resolved]
  - Rheumatoid arthritis [Not Recovered/Not Resolved]
